FAERS Safety Report 7103050-X (Version None)
Quarter: 2010Q4

REPORT INFORMATION
  Report Type: 
  Country: None (occurrence: None)
  Receive Date: 20101115
  Receipt Date: 20101105
  Transmission Date: 20110411
  Serious: Yes (Other)
  Sender: FDA-Public Use
  Company Number: GB-ASTRAZENECA-2010SE52875

PATIENT
  Age: 40 Year
  Sex: Female

DRUGS (2)
  1. SEROQUEL [Suspect]
     Route: 048
  2. SEROQUEL [Suspect]
     Route: 048

REACTIONS (3)
  - MOOD SWINGS [None]
  - NEPHROPATHY TOXIC [None]
  - NEUROLEPTIC MALIGNANT SYNDROME [None]
